FAERS Safety Report 9225943 (Version 1)
Quarter: 2013Q2

REPORT INFORMATION
  Report Type: Spontaneous
  Country: US (occurrence: US)
  Receive Date: 20130411
  Receipt Date: 20130411
  Transmission Date: 20140414
  Serious: No
  Sender: FDA-Public Use
  Company Number: US-ASTELLAS-2013US003643

PATIENT
  Age: 37 Year
  Sex: Female

DRUGS (1)
  1. PROTOPIC [Suspect]
     Indication: DERMATITIS
     Dosage: UNK
     Route: 061

REACTIONS (1)
  - Application site burn [Unknown]
